FAERS Safety Report 6593457-1 (Version None)
Quarter: 2010Q1

REPORT INFORMATION
  Report Type: 
  Country: None (occurrence: None)
  Receive Date: 20100222
  Receipt Date: 20090505
  Transmission Date: 20100710
  Serious: No
  Sender: FDA-Public Use
  Company Number: US-BRISTOL-MYERS SQUIBB COMPANY-14611412

PATIENT
  Age: 60 Year
  Sex: Female
  Weight: 81 kg

DRUGS (6)
  1. ORENCIA [Suspect]
     Indication: RHEUMATOID ARTHRITIS
     Dosage: MONTHLY ORENCIA INFUSION
     Dates: start: 20090201
  2. PRAVASTATIN SODIUM [Concomitant]
  3. ASPIRIN [Concomitant]
  4. PREDNISONE [Concomitant]
     Dates: start: 19920101
  5. HYDROXYZINE [Concomitant]
  6. CHLORDIAZEPOXIDE HCL W/ CLIDINIUM BROMIDE [Concomitant]

REACTIONS (1)
  - CYSTITIS [None]
